FAERS Safety Report 10159208 (Version 1)
Quarter: 2014Q2

REPORT INFORMATION
  Report Type: Spontaneous
  Country: VE (occurrence: VE)
  Receive Date: 20140508
  Receipt Date: 20140508
  Transmission Date: 20141212
  Serious: Yes (Other)
  Sender: FDA-Public Use
  Company Number: PHHY2014VE054438

PATIENT
  Sex: Female

DRUGS (2)
  1. SANDOSTATIN LAR [Suspect]
     Indication: ACROMEGALY
     Dosage: 40 MG, UNK
  2. PEGVISOMANT [Concomitant]
     Dosage: UNK UKN, UNK

REACTIONS (3)
  - Chest discomfort [Unknown]
  - Cholelithiasis [Unknown]
  - Bradycardia [Unknown]
